FAERS Safety Report 5874696-1 (Version None)
Quarter: 2008Q3

REPORT INFORMATION
  Report Type: 
  Country: None (occurrence: None)
  Receive Date: 20080909
  Receipt Date: 20080903
  Transmission Date: 20090109
  Serious: Yes (Hospitalization)
  Sender: FDA-Public Use
  Company Number: US-BRISTOL-MYERS SQUIBB COMPANY-14323703

PATIENT
  Age: 47 Year
  Sex: Female

DRUGS (1)
  1. IXEMPRA KIT [Suspect]
     Indication: BREAST CANCER METASTATIC
     Dosage: DURATION:3HRS, FOR THE LAST COUPLE OF WEEKS.
     Dates: start: 20080101

REACTIONS (1)
  - PLEURAL EFFUSION [None]
